FAERS Safety Report 7582940-8 (Version None)
Quarter: 2011Q2

REPORT INFORMATION
  Report Type: 
  Country: None (occurrence: None)
  Receive Date: 20110630
  Receipt Date: 20110615
  Transmission Date: 20111010
  Serious: Yes (Hospitalization, Other)
  Sender: FDA-Public Use
  Company Number: US-CELGENEUS-163-20785-11053615

PATIENT
  Sex: Male
  Weight: 81.72 kg

DRUGS (19)
  1. THALOMID [Suspect]
     Indication: MULTIPLE MYELOMA
     Dosage: 50 MILLIGRAM
     Route: 048
     Dates: start: 20000801
  2. AUGMENTIN '125' [Concomitant]
     Dosage: 125 MILLIGRAM
     Route: 048
  3. LEVSIN [Concomitant]
     Dosage: .125 MILLIGRAM
     Route: 048
  4. REVLIMID [Concomitant]
     Dosage: 25 MILLIGRAM
     Route: 048
  5. AREDIA [Concomitant]
     Dosage: 90 MILLIGRAM
     Route: 051
  6. ZOMETA [Concomitant]
     Dosage: 4 MILLIGRAM
     Route: 051
  7. DECADRON [Concomitant]
     Indication: MULTIPLE MYELOMA
     Dosage: 4 MILLIGRAM
     Route: 048
     Dates: start: 20000801
  8. NEXIUM [Concomitant]
     Dosage: 40 MILLIGRAM
     Route: 048
  9. THALOMID [Suspect]
     Dosage: 100 MILLIGRAM
     Route: 048
     Dates: start: 20090401
  10. CLINDAMYCIN [Concomitant]
     Dosage: 300 MILLIGRAM
     Route: 048
  11. K-PHOS NEUTRAL [Concomitant]
     Dosage: 250 MILLIGRAM
     Route: 048
  12. VITAMIN D [Concomitant]
     Dosage: 50000 UNITS
     Route: 048
  13. VELCADE [Concomitant]
     Indication: MULTIPLE MYELOMA
     Route: 051
     Dates: start: 20040101, end: 20060201
  14. COUMADIN [Concomitant]
     Dosage: 15 MILLIGRAM
     Route: 048
  15. THALOMID [Suspect]
     Dosage: 50 MILLIGRAM
     Route: 048
     Dates: start: 20010801, end: 20050101
  16. CLARITHROMYCIN [Concomitant]
     Dosage: 250 MILLIGRAM
     Route: 048
  17. THALOMID [Suspect]
     Dosage: 100 MILLIGRAM
     Route: 048
     Dates: start: 20050601, end: 20080101
  18. POTASSIUM CHLORIDE [Concomitant]
     Dosage: 20 MILLIEQUIVALENTS
     Route: 048
  19. COUMADIN [Concomitant]
     Dosage: 10 MILLIGRAM
     Route: 048

REACTIONS (13)
  - DISEASE PROGRESSION [None]
  - MULTIPLE MYELOMA [None]
  - CONSTIPATION [None]
  - NO THERAPEUTIC RESPONSE [None]
  - PNEUMONIA KLEBSIELLA [None]
  - SPINAL CORD COMPRESSION [None]
  - SPINAL COMPRESSION FRACTURE [None]
  - ANAEMIA [None]
  - TREATMENT FAILURE [None]
  - NEOPLASM RECURRENCE [None]
  - NEUROPATHY PERIPHERAL [None]
  - DIARRHOEA [None]
  - HYPOAESTHESIA ORAL [None]
